FAERS Safety Report 8580818 (Version 3)
Quarter: 2012Q4

REPORT INFORMATION
  Report Type: Report from Study
  Country: CH (occurrence: FR)
  Receive Date: 20120525
  Receipt Date: 20121221
  Transmission Date: 20130627
  Serious: Yes (Hospitalization)
  Sender: FDA-Public Use
  Company Number: FR-BRISTOL-MYERS SQUIBB COMPANY-16614265

PATIENT
  Age: 66 Year
  Sex: Male
  Weight: 77 kg

DRUGS (3)
  1. CETUXIMAB [Suspect]
     Indication: NON-SMALL CELL LUNG CANCER
     Dosage: cetuximab 5mg/ml
recent dose 250mg/m2,inf 14, 10May12
     Route: 042
     Dates: start: 20120131
  2. CISPLATIN FOR INJ [Suspect]
     Indication: NON-SMALL CELL LUNG CANCER
     Dosage: recent dose 80mg/m2, on 3May12
inf 4,
     Route: 042
     Dates: start: 20120131
  3. VINORELBINE [Suspect]
     Indication: NON-SMALL CELL LUNG CANCER
     Dosage: 25mg/m2 day 1 and day 8 of each 3wk cycle.
recent dose 25mg/m2,
inf 10, 10May12
     Route: 042
     Dates: start: 20120131

REACTIONS (1)
  - Febrile bone marrow aplasia [Recovered/Resolved]
